FAERS Safety Report 5570447-9 (Version None)
Quarter: 2007Q4

REPORT INFORMATION
  Report Type: 
  Country: None (occurrence: None)
  Receive Date: 20071221
  Receipt Date: 20070906
  Transmission Date: 20080405
  Serious: No
  Sender: FDA-Public Use
  Company Number: US-BRISTOL-MYERS SQUIBB COMPANY-13897368

PATIENT
  Age: 73 Year
  Sex: Female
  Weight: 53 kg

DRUGS (4)
  1. ORENCIA [Suspect]
     Indication: RHEUMATOID ARTHRITIS
     Route: 042
     Dates: start: 20070302, end: 20070802
  2. NORVASC [Concomitant]
  3. CALCIUM + VITAMIN D [Concomitant]
  4. FOSAMAX [Concomitant]

REACTIONS (2)
  - DYSPNOEA [None]
  - MALAISE [None]
